FAERS Safety Report 18513919 (Version 10)
Quarter: 2024Q2

REPORT INFORMATION
  Report Type: Report from Study
  Country: US (occurrence: US)
  Receive Date: 20201117
  Receipt Date: 20240517
  Transmission Date: 20240716
  Serious: Yes (Other)
  Sender: FDA-Public Use
  Company Number: US-TAKEDA-US202021247

PATIENT
  Age: 66 Year
  Sex: Female

DRUGS (2)
  1. HUMAN IMMUNOGLOBULIN G [Suspect]
     Active Substance: HUMAN IMMUNOGLOBULIN G
     Indication: Primary immunodeficiency syndrome
     Dosage: UNK
     Route: 042
  2. HUMAN IMMUNOGLOBULIN G [Suspect]
     Active Substance: HUMAN IMMUNOGLOBULIN G
     Indication: Hypogammaglobulinaemia

REACTIONS (25)
  - Hemiplegia [Unknown]
  - Concussion [Unknown]
  - Autoimmune disorder [Unknown]
  - Macular degeneration [Unknown]
  - Post-acute COVID-19 syndrome [Unknown]
  - Generalised oedema [Unknown]
  - Multimorbidity [Unknown]
  - Eye irritation [Unknown]
  - Blood pressure abnormal [Unknown]
  - Infusion related reaction [Unknown]
  - Fungal infection [Unknown]
  - Arthropod bite [Unknown]
  - COVID-19 [Unknown]
  - Blood glucose increased [Unknown]
  - Eye disorder [Unknown]
  - Visual impairment [Unknown]
  - Sinusitis [Unknown]
  - Fatigue [Unknown]
  - Dyspnoea [Unknown]
  - Pyrexia [Unknown]
  - Infusion site pruritus [Unknown]
  - Oxygen saturation decreased [Unknown]
  - Malaise [Unknown]
  - Blood pressure increased [Unknown]
  - Alopecia [Unknown]

NARRATIVE: CASE EVENT DATE: 20191101
